FAERS Safety Report 5358644-9 (Version None)
Quarter: 2007Q2

REPORT INFORMATION
  Report Type: 
  Country: None (occurrence: None)
  Receive Date: 20070601
  Receipt Date: 20070313
  Transmission Date: 20071010
  Serious: No
  Sender: FDA-Public Use
  Company Number: PHEH2007US01950

PATIENT
  Age: 75 Year
  Sex: Female

DRUGS (2)
  1. ENABLEX [Suspect]
     Indication: URINARY INCONTINENCE
     Dosage: SEE IMAGE
     Dates: start: 20070210, end: 20070223
  2. ENABLEX [Suspect]
     Indication: URINARY INCONTINENCE
     Dosage: SEE IMAGE
     Dates: start: 20070224

REACTIONS (4)
  - CONSTIPATION [None]
  - DRY MOUTH [None]
  - DYSPEPSIA [None]
  - JOINT SWELLING [None]
